FAERS Safety Report 9131443 (Version 1)
Quarter: 2013Q1

REPORT INFORMATION
  Report Type: Spontaneous
  Country: DE (occurrence: DE)
  Receive Date: 20130301
  Receipt Date: 20130301
  Transmission Date: 20140127
  Serious: Yes (Hospitalization)
  Sender: FDA-Public Use
  Company Number: DE-UCBSA-079408

PATIENT
  Sex: Male

DRUGS (9)
  1. NEUPRO [Suspect]
     Dosage: PATCH
  2. LEGANTO [Suspect]
  3. IMIPRAN [Concomitant]
  4. L-THYROXIN [Concomitant]
  5. CIPRAMIL [Concomitant]
  6. TRAMADOLOR [Concomitant]
  7. MADOPAR [Concomitant]
  8. STALEVO [Concomitant]
  9. ACYLEST [Concomitant]

REACTIONS (2)
  - Erythema [Unknown]
  - Drug therapeutic incompatibility [Unknown]
